FAERS Safety Report 9942390 (Version 2)
Quarter: 2014Q1

REPORT INFORMATION
  Report Type: Spontaneous
  Country: US (occurrence: US)
  Receive Date: 20140303
  Receipt Date: 20140321
  Transmission Date: 20141002
  Serious: Yes (Hospitalization, Other)
  Sender: FDA-Public Use
  Company Number: PHEH2014US004012

PATIENT
  Age: 78 Year
  Sex: Female

DRUGS (22)
  1. RECLAST [Suspect]
     Indication: OSTEOPOROSIS POSTMENOPAUSAL
     Dosage: 5 MG/100ML ONCE YEARLY
     Route: 042
     Dates: start: 20070724
  2. RECLAST [Suspect]
     Dosage: 5 MG/100ML ONCE YEARLY
     Route: 042
     Dates: start: 20091106
  3. RECLAST [Suspect]
     Dosage: 5 MG/100ML ONCE YEARLY
     Route: 042
     Dates: start: 2010
  4. RECLAST [Suspect]
     Dosage: 5 MG/100ML ONCE YEARLY
     Route: 042
     Dates: start: 2011
  5. NSAID^S [Concomitant]
     Dosage: UNK UKN, UNK
     Dates: start: 20021216
  6. CLINORIL [Concomitant]
     Dosage: UNK UKN, UNK
     Dates: start: 20060925
  7. IBUPROFEN [Concomitant]
     Dosage: UNK UKN, UNK
     Dates: start: 20090109
  8. FOSAMAX [Concomitant]
     Indication: ABDOMINAL DISCOMFORT
     Dosage: UNK UKN, UNK
     Dates: start: 20090722
  9. BONIVA [Concomitant]
     Indication: ABDOMINAL DISCOMFORT
     Dosage: UNK UKN, UNK
     Dates: start: 20091106
  10. CLONIDINE [Concomitant]
     Dosage: 1 DF, BID, DAILY
  11. HYDROCHLOROTHIAZID [Concomitant]
     Dosage: 1 DF, BID
  12. TYLENOL ARTHRITIS [Concomitant]
     Dosage: 650 MG, AS NECESSARY
  13. FERROUS SULFATE [Concomitant]
     Dosage: 1 DF, QD (65MG IRON)
  14. OS-CAL 500 + D [Concomitant]
     Dosage: 1 DF, QD (500MG)
  15. VITAMIIN C [Concomitant]
     Dosage: 1 DF, DAILY
  16. MULTI-VITAMINS VITAFIT [Concomitant]
     Dosage: 1 DF, DAILY
  17. HYDRALAZINE [Concomitant]
     Dosage: 1 DF, BID
  18. VITAMIN D [Concomitant]
     Dosage: 1 DF, TWICE MONTH
  19. ASPIRIN [Concomitant]
     Dosage: 1 DF, QD
  20. METOPROLOL TARTRATE [Concomitant]
     Dosage: 1 DF, BID
  21. PRINIVIL [Concomitant]
     Dosage: 1 DF, BID
  22. MANNITOL [Concomitant]
     Dosage: UNK UKN, UNK

REACTIONS (13)
  - Atrial fibrillation [Not Recovered/Not Resolved]
  - Palpitations [Unknown]
  - Dizziness [Unknown]
  - Fatigue [Unknown]
  - Dyspnoea [Unknown]
  - Asthenia [Unknown]
  - Nausea [Unknown]
  - Heart rate increased [Unknown]
  - Cardiac valve disease [Unknown]
  - Rectal prolapse [Unknown]
  - Rectocele [Unknown]
  - Senile osteoporosis [Unknown]
  - Drug hypersensitivity [Unknown]
